FAERS Safety Report 15643998 (Version 1)
Quarter: 2018Q4

REPORT INFORMATION
  Report Type: Spontaneous
  Country: US (occurrence: US)
  Receive Date: 20181121
  Receipt Date: 20181121
  Transmission Date: 20190205
  Serious: Yes (Hospitalization, Other)
  Sender: FDA-Public Use
  Company Number: US-IMPAX LABORATORIES, LLC-2018-IPXL-03730

PATIENT
  Sex: Male

DRUGS (3)
  1. CARBIDOPA/LEVODOPA [Concomitant]
     Active Substance: CARBIDOPA\LEVODOPA
     Indication: PARKINSON^S DISEASE
     Dosage: 25/100 MG, TWO TABLETS THREE TIMES A DAY (TID)
     Route: 065
  2. RYTARY [Suspect]
     Active Substance: CARBIDOPA\LEVODOPA
     Indication: PARKINSON^S DISEASE
     Dosage: 36.25/145 MG, 2 CAPSULES ONCE A DAY
     Route: 048
     Dates: start: 2016
  3. MIDODRINE [Concomitant]
     Active Substance: MIDODRINE
     Indication: CARDIOVASCULAR DISORDER
     Dosage: 2.5 MG, TWO TABLETS ONE IN MORNING AND 1 IN NIGHT
     Route: 048

REACTIONS (4)
  - Prescribed underdose [Unknown]
  - Rib fracture [Recovered/Resolved]
  - Fall [Recovered/Resolved]
  - Loss of consciousness [Recovered/Resolved]

NARRATIVE: CASE EVENT DATE: 201806
